FAERS Safety Report 17794724 (Version 1)
Quarter: 2020Q2

REPORT INFORMATION
  Report Type: Spontaneous
  Country: JP (occurrence: JP)
  Receive Date: 20200515
  Receipt Date: 20200515
  Transmission Date: 20200714
  Serious: Yes (Other)
  Sender: FDA-Public Use
  Company Number: JP-ALLERGAN-2019698US

PATIENT
  Sex: Female

DRUGS (7)
  1. HORMONES [Concomitant]
     Active Substance: UNSPECIFIED INGREDIENT
     Indication: ENDOMETRIOSIS
  2. WINDBREAK [Concomitant]
     Indication: CONSTIPATION
     Dosage: UNK, QD
     Route: 065
  3. ANXIOLYTICS [Concomitant]
     Active Substance: UNSPECIFIED INGREDIENT
     Indication: ANXIETY
     Dosage: UNK
     Route: 065
  4. GOOFICE [Concomitant]
     Active Substance: ELOBIXIBAT
     Indication: PRODUCT USED FOR UNKNOWN INDICATION
     Dosage: UNK UNK, UNKNOWN FREQ.
     Route: 065
  5. LINACLOTIDE - BP [Suspect]
     Active Substance: LINACLOTIDE
     Indication: IRRITABLE BOWEL SYNDROME
     Dosage: 0.25 MG, ONCE DAILY, BEFORE BREAKFAST
     Route: 048
  6. DAIKENCHUTO [Concomitant]
     Active Substance: HERBALS
     Indication: PROPHYLAXIS
     Dosage: UNK
     Route: 065
  7. LINACLOTIDE - BP [Suspect]
     Active Substance: LINACLOTIDE
     Dosage: 0.5 MG, UNKNOWN FREQ.
     Route: 048

REACTIONS (9)
  - Feeding disorder [Unknown]
  - Endometriosis [Unknown]
  - Off label use [Unknown]
  - Ileus [Unknown]
  - Anxiety [Unknown]
  - Gastrointestinal motility disorder [Unknown]
  - Diarrhoea [Unknown]
  - Polyp [Unknown]
  - Impaired work ability [Unknown]
